FAERS Safety Report 7935343-8 (Version None)
Quarter: 2011Q4

REPORT INFORMATION
  Report Type: 
  Country: None (occurrence: None)
  Receive Date: 20111122
  Receipt Date: 20111121
  Transmission Date: 20120403
  Serious: Yes (Other)
  Sender: FDA-Public Use
  Company Number: JP-PFIZER INC-2011285457

PATIENT
  Age: 42 Year
  Sex: Male

DRUGS (7)
  1. MEFENAMIC ACID [Concomitant]
  2. CLONAZEPAM [Concomitant]
  3. FAMOTIDINE [Concomitant]
  4. VOLTAREN [Concomitant]
  5. LIPITOR [Suspect]
     Indication: HYPERLIPIDAEMIA
     Dosage: 10 MG, 1X/DAY
     Route: 048
  6. TASMOLIN [Concomitant]
  7. GASMOTIN [Concomitant]

REACTIONS (1)
  - BLOOD PRESSURE INCREASED [None]
